FAERS Safety Report 9470434 (Version 6)
Quarter: 2013Q4

REPORT INFORMATION
  Report Type: Report from Study
  Country: DE (occurrence: DE)
  Receive Date: 20130822
  Receipt Date: 20131028
  Transmission Date: 20140711
  Serious: Yes (Life-Threatening, Hospitalization)
  Sender: FDA-Public Use
  Company Number: DE-009507513-1308DEU008498

PATIENT
  Age: 61 Year
  Sex: Female
  Weight: 73 kg

DRUGS (9)
  1. RIBAVIRIN [Suspect]
     Indication: CHRONIC HEPATITIS C
     Dosage: 200 MG, QID
     Route: 048
     Dates: start: 20130419
  2. RIBAVIRIN [Suspect]
     Dosage: 400 MG, BID
     Route: 048
  3. RIBAVIRIN [Suspect]
     Dosage: 1000 MG, UNK
     Route: 048
     Dates: start: 20130420, end: 20130904
  4. BOCEPREVIR [Suspect]
     Indication: CHRONIC HEPATITIS C
     Dosage: 200 MG, 2 IN ONE DAY
     Route: 048
     Dates: start: 20130612
  5. BOCEPREVIR [Suspect]
     Dosage: 800 MG, TID
     Route: 048
     Dates: start: 20130612, end: 20130904
  6. PEGINTERFERON ALFA-2A [Suspect]
     Indication: CHRONIC HEPATITIS C
     Dosage: 180 MICROGRAM, QW
     Route: 058
     Dates: start: 20130517
  7. PEGINTERFERON ALFA-2A [Suspect]
     Dosage: 180 MICROGRAM
     Route: 058
     Dates: start: 20130521, end: 20130905
  8. SPIRONOLACTONE [Concomitant]
     Indication: HEPATIC CIRRHOSIS
     Dosage: 100 MG, QD
     Route: 048
     Dates: start: 201205, end: 20130813
  9. PANTOPRAZOLE [Concomitant]
     Indication: GASTRITIS
     Dosage: 40 MG, QD
     Route: 048
     Dates: start: 201205, end: 20130813

REACTIONS (6)
  - Hyponatraemia [Recovering/Resolving]
  - Asthenia [Recovering/Resolving]
  - Decreased appetite [Not Recovered/Not Resolved]
  - Dehydration [Recovering/Resolving]
  - Rhabdomyolysis [Recovering/Resolving]
  - Myalgia [Recovering/Resolving]
